FAERS Safety Report 15752551 (Version 4)
Quarter: 2019Q2

REPORT INFORMATION
  Report Type: Spontaneous
  Country: JP (occurrence: JP)
  Receive Date: 20181221
  Receipt Date: 20190418
  Transmission Date: 20190711
  Serious: Yes (Other)
  Sender: FDA-Public Use
  Company Number: PHHY2018JP186620

PATIENT
  Age: 4 Year
  Sex: Male

DRUGS (8)
  1. PREDNISOLONE. [Suspect]
     Active Substance: PREDNISOLONE
     Indication: ACUTE MYELOID LEUKAEMIA
     Dosage: (CUMULATIVE DOSE OF 9781 MG/M2)
     Route: 065
  2. DEXAMETHASON [Suspect]
     Active Substance: DEXAMETHASONE
     Indication: ACUTE MYELOID LEUKAEMIA
     Dosage: (CUMULATIVE DOSE OF 237MG/M2)
     Route: 065
  3. METHOTREXATE. [Concomitant]
     Active Substance: METHOTREXATE
     Indication: NERVOUS SYSTEM DISORDER
     Route: 065
  4. ALCORTIN [Suspect]
     Active Substance: HYDROCORTISONE\IODOQUINOL
     Indication: NERVOUS SYSTEM DISORDER
  5. METHYLPREDNISOLONE. [Suspect]
     Active Substance: METHYLPREDNISOLONE
     Indication: ACUTE MYELOID LEUKAEMIA
     Dosage: (CUMULATIVE DOSE OF 1875 MG/M2)
     Route: 065
  6. HYDROCORTISONE. [Suspect]
     Active Substance: HYDROCORTISONE
     Indication: ACUTE MYELOID LEUKAEMIA
     Route: 065
  7. ALCORTIN [Suspect]
     Active Substance: HYDROCORTISONE\IODOQUINOL
     Indication: ACUTE MYELOID LEUKAEMIA
     Route: 065
  8. CYTARABINE. [Concomitant]
     Active Substance: CYTARABINE
     Indication: NERVOUS SYSTEM DISORDER
     Route: 037

REACTIONS (9)
  - Nausea [Unknown]
  - Adrenal suppression [Unknown]
  - Hypoglycaemia [Unknown]
  - Adrenocortical insufficiency acute [Unknown]
  - Gastroenteritis viral [Unknown]
  - Adrenal insufficiency [Unknown]
  - Respiratory tract infection [Unknown]
  - Somnolence [Unknown]
  - Hypothalamo-pituitary disorder [Unknown]
